FAERS Safety Report 4573417-2 (Version None)
Quarter: 2005Q1

REPORT INFORMATION
  Report Type: 
  Country: None (occurrence: None)
  Receive Date: 20050208
  Receipt Date: 20040805
  Transmission Date: 20050727
  Serious: No
  Sender: FDA-Public Use
  Company Number: US-GLAXOSMITHKLINE-A0521613A

PATIENT
  Age: 52 Year
  Sex: Female

DRUGS (3)
  1. PAXIL [Suspect]
     Indication: DEPRESSION
     Dosage: 20MG PER DAY
     Route: 048
  2. CLONOPIN [Concomitant]
  3. ESTROGEN [Concomitant]

REACTIONS (2)
  - BALANCE DISORDER [None]
  - EYELID PTOSIS [None]
